FAERS Safety Report 11138710 (Version 4)
Quarter: 2016Q1

REPORT INFORMATION
  Report Type: Report from Study
  Country: BR (occurrence: BR)
  Receive Date: 20150527
  Receipt Date: 20160322
  Transmission Date: 20160525
  Serious: Yes (Hospitalization, Other)
  Sender: FDA-Public Use
  Company Number: BR-ROCHE-1393212

PATIENT
  Age: 48 Year
  Sex: Female
  Weight: 52 kg

DRUGS (12)
  1. PREDSIM [Concomitant]
     Active Substance: PREDNISOLONE
     Indication: RHEUMATOID ARTHRITIS
     Route: 065
  2. METHOTREXATE [Concomitant]
     Active Substance: METHOTREXATE
     Indication: RHEUMATOID ARTHRITIS
     Dosage: ADMINISTERED ON THURSDAYS AND FRIDAYS
     Route: 065
  3. SOMALIUM [Concomitant]
     Active Substance: BROMAZEPAM
  4. TECTA [Concomitant]
     Active Substance: PANTOPRAZOLE MAGNESIUM
     Indication: OESOPHAGEAL DISORDER
  5. RESOLOR [Concomitant]
     Active Substance: PRUCALOPRIDE SUCCINATE
  6. ACTEMRA [Suspect]
     Active Substance: TOCILIZUMAB
     Indication: RHEUMATOID ARTHRITIS
     Dosage: MOST RECENT DOSE WAS ON 13/JAN/2014.
     Route: 042
     Dates: start: 20131113, end: 201503
  7. MABTHERA [Suspect]
     Active Substance: RITUXIMAB
     Indication: RHEUMATOID ARTHRITIS
     Dosage: FIRST INFUSION
     Route: 042
     Dates: start: 20150518, end: 20150604
  8. PREDSIM [Concomitant]
     Active Substance: PREDNISOLONE
     Dosage: 1.5 TABLET /MORNING AND 1.5 TABLET/AFTERNOON
     Route: 048
  9. METHOTREXATE [Concomitant]
     Active Substance: METHOTREXATE
     Route: 048
  10. TECTA [Concomitant]
     Active Substance: PANTOPRAZOLE MAGNESIUM
     Indication: GASTRIC DISORDER
     Dosage: 1 TABLET BEFORE LUNCH AND 1 TABLET BEFORE DINNER
     Route: 048
  11. PRIMOGYNA [Concomitant]
     Route: 065
  12. PROCORALAN [Concomitant]
     Active Substance: IVABRADINE
     Indication: CARDIAC DISORDER

REACTIONS (27)
  - Cough [Unknown]
  - Haemorrhoids thrombosed [Unknown]
  - Pharyngeal erythema [Recovering/Resolving]
  - Arthralgia [Not Recovered/Not Resolved]
  - Pharyngeal disorder [Unknown]
  - Oesophageal disorder [Unknown]
  - Weight decreased [Not Recovered/Not Resolved]
  - Trismus [Not Recovered/Not Resolved]
  - Joint swelling [Not Recovered/Not Resolved]
  - Pruritus [Unknown]
  - Headache [Unknown]
  - Eye pain [Unknown]
  - Malaise [Unknown]
  - Malnutrition [Not Recovered/Not Resolved]
  - Malnutrition [Not Recovered/Not Resolved]
  - Hepatomegaly [Unknown]
  - General physical health deterioration [Unknown]
  - Hypersensitivity [Not Recovered/Not Resolved]
  - Invasive breast carcinoma [Unknown]
  - Neoplasm malignant [Unknown]
  - White blood cell count decreased [Unknown]
  - Throat tightness [Unknown]
  - Pyrexia [Recovering/Resolving]
  - Endocrine disorder [Unknown]
  - Drug ineffective [Unknown]
  - Anaemia [Not Recovered/Not Resolved]
  - Laboratory test abnormal [Unknown]

NARRATIVE: CASE EVENT DATE: 201402
